FAERS Safety Report 13508186 (Version 2)
Quarter: 2017Q4

REPORT INFORMATION
  Report Type: Report from Study
  Country: BR (occurrence: BR)
  Receive Date: 20170503
  Receipt Date: 20171228
  Transmission Date: 20180320
  Serious: Yes (Other)
  Sender: FDA-Public Use
  Company Number: PHHY2017BR064125

PATIENT
  Sex: Female
  Weight: 72 kg

DRUGS (1)
  1. EXELON PATCH [Suspect]
     Active Substance: RIVASTIGMINE
     Indication: DEMENTIA
     Dosage: 1 DF, QD (2 AND HALF YEARS AGO)
     Route: 062

REACTIONS (3)
  - Dysentery [Recovering/Resolving]
  - Diarrhoea [Recovering/Resolving]
  - Memory impairment [Unknown]
